FAERS Safety Report 4922084-4 (Version None)
Quarter: 2006Q1

REPORT INFORMATION
  Report Type: 
  Country: None (occurrence: None)
  Receive Date: 20060224
  Receipt Date: 20060213
  Transmission Date: 20060701
  Serious: Yes (Hospitalization)
  Sender: FDA-Public Use
  Company Number: NL-AMGEN-UK168774

PATIENT
  Sex: Female
  Weight: 81.7 kg

DRUGS (7)
  1. NEULASTA - PREFILLED SYRINGE [Suspect]
     Indication: CHEMOTHERAPY
     Route: 058
     Dates: start: 20051201, end: 20060101
  2. FLUOROURACIL [Concomitant]
     Route: 065
  3. EPIRUBICIN [Concomitant]
     Route: 065
  4. CYCLOPHOSPHAMIDE [Concomitant]
     Route: 065
  5. ASCAL [Concomitant]
     Route: 065
  6. MACROGOL [Concomitant]
     Route: 065
  7. PANTOZOL [Concomitant]
     Route: 065

REACTIONS (4)
  - DYSPNOEA [None]
  - PROSTRATION [None]
  - SYNCOPE [None]
  - VOMITING [None]
